FAERS Safety Report 9220548 (Version 1)
Quarter: 2013Q2

REPORT INFORMATION
  Report Type: Spontaneous
  Country: US (occurrence: US)
  Receive Date: 20130409
  Receipt Date: 20130409
  Transmission Date: 20140414
  Serious: No
  Sender: FDA-Public Use
  Company Number: US-ASTRAZENECA-2013SE19850

PATIENT
  Age: 53 Year
  Sex: Female

DRUGS (19)
  1. LISINOPRIL [Suspect]
     Route: 048
  2. SEROQUEL [Suspect]
     Route: 048
  3. ABILIFY [Concomitant]
     Route: 048
  4. PROZAC [Concomitant]
     Route: 048
  5. HYDROCHLOROTHIAZIDE [Concomitant]
     Route: 048
  6. TOPROL XL [Concomitant]
     Route: 048
  7. LYRICA [Concomitant]
     Route: 048
  8. ZOFRAN [Concomitant]
     Indication: NAUSEA
     Route: 048
  9. COLCRYS [Concomitant]
     Route: 048
  10. OMEPRAZOLE [Concomitant]
     Route: 048
  11. STOOL SOFTENER [Concomitant]
     Route: 048
  12. STOOL SOFTENER [Concomitant]
     Route: 048
  13. CLONAZEPAM [Concomitant]
     Route: 048
  14. LOSARTAN POTASSIUM [Concomitant]
     Route: 048
  15. CIPRO [Concomitant]
     Route: 048
  16. ARTHROTEC [Concomitant]
     Dosage: 75 MG -200 MCG 1 TABLET TWO TIMES A DAY
     Route: 048
  17. ROBAXIN [Concomitant]
     Indication: PAIN
     Route: 048
  18. TRAZODONE HYDROCHLORIDE [Concomitant]
     Route: 048
  19. FLEXERIL [Concomitant]
     Route: 048

REACTIONS (9)
  - Osteoporosis [Unknown]
  - Pain [Unknown]
  - Essential hypertension [Unknown]
  - Anxiety [Unknown]
  - Gastrooesophageal reflux disease [Unknown]
  - Depression [Unknown]
  - Nausea [Unknown]
  - Syncope [Unknown]
  - Dyskinesia [Unknown]
